FAERS Safety Report 20065247 (Version 3)
Quarter: 2022Q1

REPORT INFORMATION
  Report Type: Spontaneous
  Country: US (occurrence: None)
  Receive Date: 20211113
  Receipt Date: 20220217
  Transmission Date: 20220423
  Serious: No
  Sender: FDA-Public Use
  Company Number: 2021A805624

PATIENT
  Sex: Female
  Weight: 82.6 kg

DRUGS (1)
  1. TUDORZA PRESSAIR [Suspect]
     Active Substance: ACLIDINIUM BROMIDE
     Route: 055

REACTIONS (11)
  - Illness [Unknown]
  - Sinusitis [Unknown]
  - Growth retardation [Unknown]
  - Weight increased [Unknown]
  - Amputation stump pain [Unknown]
  - Neuropathic arthropathy [Unknown]
  - Hypertension [Unknown]
  - Erythema [Unknown]
  - Flushing [Unknown]
  - Device delivery system issue [Unknown]
  - Device malfunction [Unknown]
